FAERS Safety Report 14860851 (Version 1)
Quarter: 2018Q2

REPORT INFORMATION
  Report Type: Spontaneous
  Country: US (occurrence: US)
  Receive Date: 20180423
  Receipt Date: 20180423
  Transmission Date: 20180711
  Serious: Yes (Other)
  Sender: FDA-Public Use
  Company Number: None

PATIENT
  Age: 25 Year
  Sex: Male
  Weight: 74.7 kg

DRUGS (3)
  1. VIVITROL [Suspect]
     Active Substance: NALTREXONE
     Indication: DRUG DEPENDENCE
     Route: 030
     Dates: start: 20180319, end: 20180319
  2. QUETIAPINE. [Concomitant]
     Active Substance: QUETIAPINE
     Dates: start: 20180201
  3. DOXEPIN [Concomitant]
     Active Substance: DOXEPIN
     Dates: start: 20180201

REACTIONS (3)
  - Body temperature increased [None]
  - Gait disturbance [None]
  - Musculoskeletal pain [None]

NARRATIVE: CASE EVENT DATE: 20180319
